FAERS Safety Report 8984094 (Version 1)
Quarter: 2012Q4

REPORT INFORMATION
  Report Type: Spontaneous
  Country: ES (occurrence: None)
  Receive Date: 20121214
  Receipt Date: 20121214
  Transmission Date: 20130627
  Serious: Yes (Hospitalization, Other)
  Sender: FDA-Public Use
  Company Number: 2012SUN00324

PATIENT
  Age: 65 Year
  Sex: Male

DRUGS (2)
  1. GEMCITABINE [Suspect]
     Indication: SEZARY SYNDROME
  2. PREDNISONE [Concomitant]

REACTIONS (9)
  - Pulmonary artery thrombosis [None]
  - Pulmonary toxicity [None]
  - Interstitial lung disease [None]
  - Respiratory failure [None]
  - Disorientation [None]
  - Hypotension [None]
  - Somnolence [None]
  - Hypercapnia [None]
  - Leukocytosis [None]
